FAERS Safety Report 24885822 (Version 3)
Quarter: 2025Q2

REPORT INFORMATION
  Report Type: Spontaneous
  Country: US (occurrence: US)
  Receive Date: 20250125
  Receipt Date: 20250526
  Transmission Date: 20250717
  Serious: No
  Sender: AMGEN
  Company Number: US-AMGEN-USASP2025012904

PATIENT
  Age: 76 Year
  Sex: Female
  Weight: 40.5 kg

DRUGS (2)
  1. EVENITY [Suspect]
     Active Substance: ROMOSOZUMAB-AQQG
     Indication: Product used for unknown indication
     Route: 065
     Dates: start: 202411, end: 202501
  2. PROLIA [Suspect]
     Active Substance: DENOSUMAB
     Indication: Product used for unknown indication
     Route: 058

REACTIONS (10)
  - Abdominal distension [Not Recovered/Not Resolved]
  - Drug dose omission by device [Unknown]
  - Accidental exposure to product [Unknown]
  - Wrong technique in product usage process [Unknown]
  - Back pain [Not Recovered/Not Resolved]
  - Injection site pain [Not Recovered/Not Resolved]
  - Device difficult to use [Unknown]
  - Off label use [Unknown]
  - Device use error [Unknown]
  - Vein disorder [Unknown]

NARRATIVE: CASE EVENT DATE: 20241101
